FAERS Safety Report 4584431-5 (Version None)
Quarter: 2005Q1

REPORT INFORMATION
  Report Type: 
  Country: None (occurrence: None)
  Receive Date: 20050125
  Receipt Date: 20041110
  Transmission Date: 20050727
  Serious: No
  Sender: FDA-Public Use
  Company Number: USA041183730

PATIENT
  Age: 65 Year
  Sex: Female
  Weight: 54 kg

DRUGS (6)
  1. FORTEO [Suspect]
     Indication: OSTEOPOROSIS
     Dosage: 20 UG/1 DAY
     Dates: start: 20040720
  2. SYNTHROID [Concomitant]
  3. ACIPHEX [Concomitant]
  4. LANOXIN (DIGOXIN STREULI) [Concomitant]
  5. ZOMIG [Concomitant]
  6. VYTORIN [Concomitant]

REACTIONS (4)
  - CORNEAL DEPOSITS [None]
  - DRUG ERUPTION [None]
  - EYE PAIN [None]
  - SUBCUTANEOUS NODULE [None]
